FAERS Safety Report 18423982 (Version 2)
Quarter: 2020Q4

REPORT INFORMATION
  Report Type: Other
  Country: US (occurrence: US)
  Receive Date: 20201025
  Receipt Date: 20201214
  Transmission Date: 20210114
  Serious: Yes (Other)
  Sender: FDA-Public Use
  Company Number: US-ROCHE-2699591

PATIENT
  Sex: Female

DRUGS (12)
  1. OCREVUS [Suspect]
     Active Substance: OCRELIZUMAB
     Indication: MULTIPLE SCLEROSIS
     Dosage: INFUSE 300 MG AT DAY 1 AND DAY 15 ON 20/NOV/2019 AND INFUSE 600 MG AT EVERY 6 MONTHS
     Route: 042
     Dates: start: 20191105
  2. DESYREL [Concomitant]
     Active Substance: TRAZODONE HYDROCHLORIDE
     Dosage: TAKE 150 MG BY MOUTH EVERY NIGHT AT BED TIME.
     Route: 048
  3. ZANAFLEX [Concomitant]
     Active Substance: TIZANIDINE HYDROCHLORIDE
     Dosage: 2 MG EVERY HR FOR A WEEK THEN BID
     Route: 048
  4. NEURONTIN [Concomitant]
     Active Substance: GABAPENTIN
     Dosage: TAKE 1 AND 1/2 TABLETS BY MOUTH THREE TIMES DAILY
     Route: 048
  5. LITHIUM CARBONATE. [Concomitant]
     Active Substance: LITHIUM CARBONATE
     Dosage: 600 MG IN THE MORNING AND 900 MG AT NIGHT
     Route: 048
  6. SEROQUEL [Concomitant]
     Active Substance: QUETIAPINE FUMARATE
     Dosage: TAKE 50 MG BY MOUTH EVERY 6 HOURS AS NEEDED.
     Route: 048
  7. SUBOXONE [Concomitant]
     Active Substance: BUPRENORPHINE HYDROCHLORIDE\NALOXONE HYDROCHLORIDE
     Dosage: 8-2 MG DISSOLVE 1 TABLET UNDER THE TONGUE 3 TIMES A DAY
     Route: 048
  8. MOTRIN [Concomitant]
     Active Substance: IBUPROFEN
     Dosage: TAKE 800 MG BY MOUTH EVERY 6 TO 8 HOURS AS NEEDED.
     Route: 048
  9. ALBUTEROL HFA [Concomitant]
     Active Substance: ALBUTEROL SULFATE
     Indication: WHEEZING
     Dosage: INHALE 2 PUFFS ORALLY EVERY 4 TO 6 HOURS AS NEEDED
     Route: 048
  10. SEROQUEL [Concomitant]
     Active Substance: QUETIAPINE FUMARATE
     Dosage: TAKE 100 MG BY MOUTH EVERY NIGHT AT BEDTIME
     Route: 048
  11. VISTARIL [Concomitant]
     Active Substance: HYDROXYZINE PAMOATE
     Dosage: TAKE 50 MG BY MOUTH EVERY 6 HOURS A NEEDED
     Route: 048
  12. MEDROXYPROGESTERONE ACETATE. [Concomitant]
     Active Substance: MEDROXYPROGESTERONE ACETATE
     Route: 030

REACTIONS (1)
  - Tooth infection [Not Recovered/Not Resolved]
